FAERS Safety Report 8183420-1 (Version None)
Quarter: 2012Q1

REPORT INFORMATION
  Report Type: 
  Country: None (occurrence: None)
  Receive Date: 20120305
  Receipt Date: 20120222
  Transmission Date: 20120608
  Serious: Yes (Death)
  Sender: FDA-Public Use
  Company Number: US-COVIDIEN/TYCO HEALTHCARE/MALLINCKRODT-T201200697

PATIENT
  Age: 42 Year
  Sex: Female

DRUGS (5)
  1. METHADOSE [Suspect]
  2. BENZODIAZEPINE RELATED DRUGS [Suspect]
  3. OPIOIDS [Suspect]
  4. CANNABIS [Suspect]
  5. AMPHETAMINES [Suspect]

REACTIONS (1)
  - COMPLETED SUICIDE [None]
